FAERS Safety Report 9033726 (Version 1)
Quarter: 2013Q1

REPORT INFORMATION
  Report Type: Spontaneous
  Country: BR (occurrence: BR)
  Receive Date: 20130128
  Receipt Date: 20130128
  Transmission Date: 20140127
  Serious: Yes (Other)
  Sender: FDA-Public Use
  Company Number: BR-AMGEN-BRACT2012077800

PATIENT
  Age: 53 Year
  Sex: Female
  Weight: 64 kg

DRUGS (9)
  1. ENBREL [Suspect]
     Indication: RHEUMATOID ARTHRITIS
     Dosage: 50 MG, ONCE WEEKLY
     Route: 058
     Dates: start: 201110
  2. ENBREL [Suspect]
     Dosage: 50 MG, QWK
     Route: 058
     Dates: start: 201110
  3. PROPRANOLOL [Concomitant]
     Dosage: 20 MG, 1X/DAY
  4. OSTEONUTRI [Concomitant]
     Dosage: UNK
  5. DOMPERIDONE [Concomitant]
     Dosage: UNK
  6. CHLOROQUINE [Concomitant]
     Dosage: 100 MG, UNK
  7. MELOXICAM [Concomitant]
     Dosage: 7.5 MG, UNK
  8. RANITIDINE [Concomitant]
     Dosage: 150 MG, UNK
  9. SULFASALAZINE [Concomitant]
     Dosage: UNK

REACTIONS (6)
  - Urinary tract infection [Unknown]
  - Injection site swelling [Unknown]
  - Injection site haematoma [Unknown]
  - Injection site erythema [Unknown]
  - Injection site pruritus [Unknown]
  - Herpes virus infection [Unknown]
